FAERS Safety Report 9278932 (Version 2)
Quarter: 2013Q2

REPORT INFORMATION
  Report Type: Spontaneous
  Country: US (occurrence: None)
  Receive Date: 20130503
  Receipt Date: 20130529
  Transmission Date: 20140414
  Serious: Yes (Death)
  Sender: FDA-Public Use
  Company Number: 2013US001531

PATIENT
  Age: 49 Year
  Sex: Male

DRUGS (10)
  1. ICLUSIG [Suspect]
     Indication: CHRONIC MYELOID LEUKAEMIA
     Route: 048
     Dates: end: 20130317
  2. AMBIEN (ZOLPIDEM TARTRATE) [Concomitant]
  3. FLUCONAZOLE (FLUCONAZOLE) [Concomitant]
  4. ACYCLOVIR (ACYCLOVIR) [Concomitant]
  5. FAMOTIDINE (FAMOTIDINE) [Concomitant]
  6. METOPROLOL TARTRATE (METOPROLOL TARTRATE) (TABLETS) (METOPROLOL TARTRATE) [Concomitant]
  7. MYCOPHENOLATE (MYCOPHENOLATE MOFETIL) [Concomitant]
  8. TACROLIMUS (TACROLIMUS) [Concomitant]
  9. VITAMIN D (COLECALCIFEROL) [Concomitant]
  10. DAPSONE (DAPSONE) [Concomitant]

REACTIONS (3)
  - Sepsis [None]
  - Chronic myeloid leukaemia [None]
  - Malignant neoplasm progression [None]
